FAERS Safety Report 7630427-6 (Version None)
Quarter: 2011Q3

REPORT INFORMATION
  Report Type: 
  Country: None (occurrence: None)
  Receive Date: 20110722
  Receipt Date: 20110713
  Transmission Date: 20111222
  Serious: Yes (Other)
  Sender: FDA-Public Use
  Company Number: AU-GLAXOSMITHKLINE-B0717484A

PATIENT
  Sex: Female
  Weight: 71 kg

DRUGS (7)
  1. DUROMINE [Concomitant]
     Indication: WEIGHT DECREASED
     Dates: start: 20110218
  2. NASONEX [Concomitant]
     Indication: RHINITIS ALLERGIC
     Dosage: 1PUFF PER DAY
     Dates: start: 20100101
  3. VENTOLIN HFA [Suspect]
     Indication: ASTHMA
     Dosage: 2PUFF AS REQUIRED
     Route: 065
  4. THYROXIN [Concomitant]
     Indication: HYPOTHYROIDISM
     Dates: start: 20050726
  5. LEVONORGESTREL AND ETHINYL ESTRADIOL [Concomitant]
     Indication: CONTRACEPTION
  6. NEXIUM [Concomitant]
     Indication: CHRONIC OBSTRUCTIVE PULMONARY DISEASE
     Dates: start: 20071217
  7. SYMBICORT [Concomitant]
     Indication: ASTHMA
     Dosage: 2PUFF TWICE PER DAY

REACTIONS (6)
  - ORAL DISCOMFORT [None]
  - BURNING SENSATION [None]
  - DYSGEUSIA [None]
  - PRODUCT QUALITY ISSUE [None]
  - PAROSMIA [None]
  - THROAT IRRITATION [None]
